FAERS Safety Report 7808992 (Version 2)
Quarter: 2013Q2

REPORT INFORMATION
  Report Type: Report from Study
  Country: MX (occurrence: MX)
  Receive Date: 20110211
  Receipt Date: 20130529
  Transmission Date: 20140414
  Serious: Yes (Other)
  Sender: FDA-Public Use
  Company Number: PHHY2011MX08468

PATIENT
  Age: 69 Year
  Sex: Female

DRUGS (6)
  1. ACLASTA [Suspect]
     Indication: OSTEOPENIA
     Dosage: 5 MG, UNK
     Route: 042
     Dates: start: 20110111
  2. ACLASTA [Suspect]
     Dosage: UNK
     Route: 042
     Dates: start: 201203
  3. CALCIUM [Concomitant]
     Dosage: UNK
  4. DANZEN [Concomitant]
     Dosage: EVERY 8 HOURS FOR 10 DAYS
  5. VENALOT DEPOT [Concomitant]
     Dosage: UNK, 180 MG EVERY 12 HOURS FOR 3 WEEKS
  6. CRONOLEVEL [Concomitant]
     Dosage: UNK

REACTIONS (9)
  - Vascular injury [Recovered/Resolved]
  - Infusion site pain [Recovered/Resolved]
  - Infusion site swelling [Recovered/Resolved]
  - Vascular pain [Recovered/Resolved]
  - Infusion site bruising [Recovered/Resolved]
  - Pain in extremity [Recovered/Resolved]
  - Hypoaesthesia [Recovered/Resolved]
  - Movement disorder [Recovered/Resolved]
  - Sleep disorder [Recovered/Resolved]
